FAERS Safety Report 12787995 (Version 1)
Quarter: 2016Q3

REPORT INFORMATION
  Report Type: Report from Study
  Country: NL (occurrence: NL)
  Receive Date: 20160928
  Receipt Date: 20160928
  Transmission Date: 20161109
  Serious: Yes (Death)
  Sender: FDA-Public Use
  Company Number: NL-ABBVIE-16P-114-1739875-00

PATIENT
  Sex: Male

DRUGS (1)
  1. LUCRIN DEPOT [Suspect]
     Active Substance: LEUPROLIDE ACETATE
     Indication: PROSTATE CANCER
     Route: 030
     Dates: start: 20151008

REACTIONS (3)
  - End stage renal disease [Fatal]
  - Metastatic neoplasm [Fatal]
  - Sepsis [Fatal]
